FAERS Safety Report 5942144-9 (Version None)
Quarter: 2008Q4

REPORT INFORMATION
  Report Type: 
  Country: None (occurrence: None)
  Receive Date: 20081105
  Receipt Date: 20081027
  Transmission Date: 20090506
  Serious: Yes (Hospitalization, Disabling)
  Sender: FDA-Public Use
  Company Number: FR-AVENTIS-200815849EU

PATIENT
  Age: 57 Year
  Sex: Female

DRUGS (8)
  1. FLUDEX                             /00340101/ [Suspect]
     Route: 048
     Dates: start: 20080201
  2. VIDEX [Suspect]
     Route: 048
  3. COMBIVIR [Suspect]
     Route: 048
     Dates: start: 20060101
  4. TENORMIN [Suspect]
     Route: 048
     Dates: start: 20050501
  5. NEXIUM [Concomitant]
     Dosage: DOSE: UNK
     Dates: start: 20070901
  6. COVERSYL                           /00790701/ [Concomitant]
     Dates: start: 20080201
  7. LIPANTHYL [Concomitant]
     Dosage: DOSE: UNK
     Dates: start: 20080201
  8. NEUROTIN                           /00949202/ [Concomitant]
     Dosage: DOSE: UNK
     Dates: start: 20061201

REACTIONS (1)
  - TYPE 1 DIABETES MELLITUS [None]
